FAERS Safety Report 5972506-5 (Version None)
Quarter: 2008Q4

REPORT INFORMATION
  Report Type: 
  Country: None (occurrence: None)
  Receive Date: 20081201
  Receipt Date: 20081118
  Transmission Date: 20090506
  Serious: Yes (Hospitalization)
  Sender: FDA-Public Use
  Company Number: B0523634A

PATIENT
  Age: 59 Year
  Sex: Male

DRUGS (7)
  1. AUGMENTIN '125' [Suspect]
     Indication: TOOTHACHE
     Dosage: 1SAC THREE TIMES PER DAY
     Route: 048
     Dates: start: 20080509, end: 20080512
  2. ACETAMINOPHEN AND CODEINE PHOSPHATE [Concomitant]
     Indication: TOOTHACHE
     Dosage: 1G THREE TIMES PER DAY
     Route: 048
     Dates: start: 20080509, end: 20080512
  3. ASPEGIC 325 [Concomitant]
     Indication: TOOTHACHE
     Route: 048
     Dates: start: 20080506, end: 20080512
  4. FLECTOR [Concomitant]
     Indication: TOOTHACHE
     Route: 048
     Dates: start: 20080506, end: 20080512
  5. VALSARTAN [Concomitant]
     Dosage: 80MG PER DAY
     Route: 048
     Dates: start: 20050101, end: 20080520
  6. LEXOMIL [Concomitant]
     Indication: DRUG USE FOR UNKNOWN INDICATION
     Dosage: 1TAB PER DAY
     Route: 048
     Dates: start: 20040101, end: 20080520
  7. SEDATIF PC [Concomitant]
     Indication: DRUG USE FOR UNKNOWN INDICATION
     Route: 065
     Dates: start: 19980101

REACTIONS (17)
  - BLISTER [None]
  - DERMATITIS EXFOLIATIVE [None]
  - DRUG RASH WITH EOSINOPHILIA AND SYSTEMIC SYMPTOMS [None]
  - ECZEMA [None]
  - EOSINOPHILIA [None]
  - ERYTHEMA [None]
  - GENERALISED ERYTHEMA [None]
  - LEUKOCYTOSIS [None]
  - PRURITUS [None]
  - PURPURA [None]
  - PYREXIA [None]
  - SKIN DISORDER [None]
  - SKIN EXFOLIATION [None]
  - SKIN LESION [None]
  - TOXIC SKIN ERUPTION [None]
  - URINARY TRACT INFECTION STAPHYLOCOCCAL [None]
  - WEIGHT INCREASED [None]
